FAERS Safety Report 5451964-9 (Version None)
Quarter: 2007Q3

REPORT INFORMATION
  Report Type: 
  Country: None (occurrence: None)
  Receive Date: 20070912
  Receipt Date: 20070828
  Transmission Date: 20080115
  Serious: Yes (Death)
  Sender: FDA-Public Use
  Company Number: TNZCA200700092

PATIENT
  Age: 87 Year
  Sex: Female

DRUGS (4)
  1. INNOHEP [Suspect]
     Dosage: 14700 IU (14700 IU, DAILY), SUBCUTANEOUS
     Route: 058
  2. BACTRIM [Suspect]
     Dosage: (TWICE DAILY), ORAL
     Route: 048
  3. LOVENOX [Suspect]
     Dosage: 150 MG (75 MG, DAILY), SUBCUTANEOUS
     Route: 058
  4. HEPARIN [Concomitant]

REACTIONS (3)
  - BLOOD CREATININE INCREASED [None]
  - HYPERKALAEMIA [None]
  - PULMONARY EMBOLISM [None]
